FAERS Safety Report 6813835-2 (Version None)
Quarter: 2010Q3

REPORT INFORMATION
  Report Type: 
  Country: None (occurrence: None)
  Receive Date: 20100702
  Receipt Date: 20100625
  Transmission Date: 20110219
  Serious: Yes (Hospitalization)
  Sender: FDA-Public Use
  Company Number: US-BIOGENIDEC-2010BI021300

PATIENT
  Age: 57 Year
  Sex: Female
  Weight: 50 kg

DRUGS (1)
  1. AVONEX [Suspect]
     Indication: MULTIPLE SCLEROSIS
     Route: 030
     Dates: start: 20100101

REACTIONS (6)
  - ASTHENIA [None]
  - BLADDER DISORDER [None]
  - DEHYDRATION [None]
  - MULTIPLE SCLEROSIS [None]
  - STAPHYLOCOCCAL INFECTION [None]
  - URINARY SEDIMENT PRESENT [None]
